FAERS Safety Report 21941839 (Version 1)
Quarter: 2023Q1

REPORT INFORMATION
  Report Type: Spontaneous
  Country: US (occurrence: US)
  Receive Date: 20230202
  Receipt Date: 20230202
  Transmission Date: 20230417
  Serious: Yes (Other)
  Sender: FDA-Public Use
  Company Number: US-JNJFOC-20230157762

PATIENT
  Age: 14 Year
  Sex: Male

DRUGS (2)
  1. RISPERDAL [Suspect]
     Active Substance: RISPERIDONE
     Indication: Agitation
     Dosage: IN VARYING DOSES AND FREQUENCIES OF 01 MG TWICE DAILY, 1 MG, 2 MG DAILY - 0.5 MG EVERY MORNING, 0.5
     Route: 048
     Dates: start: 2000
  2. RISPERDAL [Suspect]
     Active Substance: RISPERIDONE
     Indication: Aggression

REACTIONS (2)
  - Obesity [Unknown]
  - Off label use [Unknown]

NARRATIVE: CASE EVENT DATE: 20000101
